FAERS Safety Report 5626054-2 (Version None)
Quarter: 2008Q1

REPORT INFORMATION
  Report Type: 
  Country: None (occurrence: None)
  Receive Date: 20080214
  Receipt Date: 20080204
  Transmission Date: 20080703
  Serious: Yes (Other)
  Sender: FDA-Public Use
  Company Number: PHFR2008GB00778

PATIENT
  Age: 85 Year
  Sex: Female

DRUGS (1)
  1. FEMARA [Suspect]
     Indication: BREAST CANCER
     Route: 065
     Dates: start: 20070619

REACTIONS (1)
  - DEPRESSED LEVEL OF CONSCIOUSNESS [None]
